FAERS Safety Report 8837589 (Version 1)
Quarter: 2012Q4

REPORT INFORMATION
  Report Type: 
  Country: US (occurrence: US)
  Receive Date: 20121012
  Receipt Date: 20121012
  Transmission Date: 20130627
  Serious: No
  Sender: FDA-Public Use
  Company Number: US-BAYER-2012-105281

PATIENT
  Sex: Male

DRUGS (2)
  1. LEVITRA [Suspect]
     Indication: ERECTILE DYSFUNCTION
     Dosage: 20 mg, UNK
     Route: 048
  2. AMLODIPINE [Concomitant]
     Indication: ERECTILE DYSFUNCTION

REACTIONS (1)
  - Erectile dysfunction [Not Recovered/Not Resolved]
